FAERS Safety Report 6144395-X (Version None)
Quarter: 2009Q2

REPORT INFORMATION
  Report Type: 
  Country: None (occurrence: None)
  Receive Date: 20090406
  Receipt Date: 20090330
  Transmission Date: 20091009
  Serious: Yes (Hospitalization)
  Sender: FDA-Public Use
  Company Number: FR-ASTRAZENECA-2009CG00601

PATIENT
  Age: 941 Month
  Sex: Male
  Weight: 70 kg

DRUGS (4)
  1. CRESTOR [Suspect]
     Indication: HYPERCHOLESTEROLAEMIA
     Route: 048
     Dates: start: 20081101, end: 20090303
  2. KARDEGIC [Concomitant]
  3. CANDESARTAN CILEXETIL [Concomitant]
     Indication: HYPERTENSION
  4. TEMERIT [Concomitant]

REACTIONS (2)
  - BLOOD CREATINE PHOSPHOKINASE INCREASED [None]
  - MUSCLE INJURY [None]
